FAERS Safety Report 9929888 (Version 1)
Quarter: 2014Q1

REPORT INFORMATION
  Report Type: Report from Study
  Country: CA (occurrence: CA)
  Receive Date: 20140227
  Receipt Date: 20140227
  Transmission Date: 20141002
  Serious: Yes (Hospitalization)
  Sender: FDA-Public Use
  Company Number: CA-B.I. PHARMACEUTICALS,INC./RIDGEFIELD-2014-BI-07543CN

PATIENT
  Age: 44 Year
  Sex: Female

DRUGS (1)
  1. GILOTRIF [Suspect]
     Indication: LUNG CANCER METASTATIC
     Dosage: 40 MG
     Route: 048
     Dates: start: 20140128, end: 20140218

REACTIONS (3)
  - Investigation [Unknown]
  - Rash [Unknown]
  - Diarrhoea [Unknown]
